FAERS Safety Report 7063101-8 (Version None)
Quarter: 2010Q4

REPORT INFORMATION
  Report Type: 
  Country: None (occurrence: None)
  Receive Date: 20101026
  Receipt Date: 20100408
  Transmission Date: 20110411
  Serious: Yes (Other)
  Sender: FDA-Public Use
  Company Number: US-PFIZER INC-2010044689

PATIENT
  Sex: Male
  Weight: 75 kg

DRUGS (4)
  1. LIPITOR [Suspect]
     Indication: BLOOD TRIGLYCERIDES
     Dosage: 10 MG, 1X/DAY
     Route: 065
     Dates: end: 20100301
  2. TRICOR [Suspect]
     Indication: BLOOD TRIGLYCERIDES INCREASED
     Dosage: 145 MG, 1X/DAY
     Route: 065
     Dates: start: 20100215, end: 20100301
  3. ACETYLSALICYLIC ACID [Concomitant]
  4. METOPROLOL [Concomitant]

REACTIONS (1)
  - HEPATIC ENZYME INCREASED [None]
